FAERS Safety Report 8390517-X (Version None)
Quarter: 2012Q2

REPORT INFORMATION
  Report Type: 
  Country: None (occurrence: None)
  Receive Date: 20120522
  Receipt Date: 20120510
  Transmission Date: 20120825
  Serious: Yes (Hospitalization, Other)
  Sender: FDA-Public Use
  Company Number: 2012SP013605

PATIENT
  Age: 59 Year
  Sex: Female
  Weight: 65 kg

DRUGS (15)
  1. PROMACTA [Concomitant]
  2. LOXONIN [Concomitant]
  3. PEGINTERFERON ALFA-2B [Suspect]
     Indication: HEPATITIS C
     Dosage: 1.24 MCG/KG;QW;SC 0.77 MCG/KG;QW;SC 0.62 MCG/KG;QW;SC 0.77 MCG/KG;QW;SC
     Route: 058
     Dates: start: 20120301, end: 20120301
  4. PEGINTERFERON ALFA-2B [Suspect]
     Indication: HEPATITIS C
     Dosage: 1.24 MCG/KG;QW;SC 0.77 MCG/KG;QW;SC 0.62 MCG/KG;QW;SC 0.77 MCG/KG;QW;SC
     Route: 058
     Dates: start: 20120329
  5. PEGINTERFERON ALFA-2B [Suspect]
     Indication: HEPATITIS C
     Dosage: 1.24 MCG/KG;QW;SC 0.77 MCG/KG;QW;SC 0.62 MCG/KG;QW;SC 0.77 MCG/KG;QW;SC
     Route: 058
     Dates: start: 20120221, end: 20120224
  6. PEGINTERFERON ALFA-2B [Suspect]
     Indication: HEPATITIS C
     Dosage: 1.24 MCG/KG;QW;SC 0.77 MCG/KG;QW;SC 0.62 MCG/KG;QW;SC 0.77 MCG/KG;QW;SC
     Route: 058
     Dates: start: 20120308, end: 20120322
  7. REBAMIPIDE [Concomitant]
  8. REBETOL [Suspect]
     Indication: HEPATITIS C
     Dosage: 600 MG;QD;PO 200 MG;QD;PO 400 MG;QD;PO
     Route: 048
     Dates: start: 20120308, end: 20120404
  9. REBETOL [Suspect]
     Indication: HEPATITIS C
     Dosage: 600 MG;QD;PO 200 MG;QD;PO 400 MG;QD;PO
     Route: 048
     Dates: start: 20120405
  10. REBETOL [Suspect]
     Indication: HEPATITIS C
     Dosage: 600 MG;QD;PO 200 MG;QD;PO 400 MG;QD;PO
     Route: 048
     Dates: start: 20120228, end: 20120228
  11. REBETOL [Suspect]
     Indication: HEPATITIS C
     Dosage: 600 MG;QD;PO 200 MG;QD;PO 400 MG;QD;PO
     Route: 048
     Dates: start: 20120221, end: 20120225
  12. ZOLPIDEM [Concomitant]
  13. TELAVIC (ANTIVIRALS NOS) [Suspect]
     Indication: HEPATITIS C
     Dosage: 2250 MG;QD;PO 750 MG;QD;PO 1500 MG;QD;PO
     Route: 048
     Dates: start: 20120221, end: 20120225
  14. TELAVIC (ANTIVIRALS NOS) [Suspect]
     Indication: HEPATITIS C
     Dosage: 2250 MG;QD;PO 750 MG;QD;PO 1500 MG;QD;PO
     Route: 048
     Dates: start: 20120302, end: 20120307
  15. TELAVIC (ANTIVIRALS NOS) [Suspect]
     Indication: HEPATITIS C
     Dosage: 2250 MG;QD;PO 750 MG;QD;PO 1500 MG;QD;PO
     Route: 048
     Dates: start: 20120308

REACTIONS (8)
  - DIARRHOEA [None]
  - GAIT DISTURBANCE [None]
  - HALLUCINATIONS, MIXED [None]
  - ABNORMAL BEHAVIOUR [None]
  - RASH ERYTHEMATOUS [None]
  - DELIRIUM [None]
  - SOMNOLENCE [None]
  - DYSARTHRIA [None]
